FAERS Safety Report 22157854 (Version 2)
Quarter: 2023Q2

REPORT INFORMATION
  Report Type: Spontaneous
  Country: US (occurrence: None)
  Receive Date: 20230330
  Receipt Date: 20230404
  Transmission Date: 20230722
  Serious: No
  Sender: FDA-Public Use
  Company Number: 2023A063359

PATIENT
  Age: 61 Year
  Sex: Male
  Weight: 61.2 kg

DRUGS (1)
  1. PULMICORT FLEXHALER [Suspect]
     Active Substance: BUDESONIDE
     Indication: Asthma
     Route: 055

REACTIONS (4)
  - COVID-19 [Unknown]
  - Insomnia [Unknown]
  - Product use issue [Unknown]
  - Device issue [Unknown]

NARRATIVE: CASE EVENT DATE: 20210101
